FAERS Safety Report 14004057 (Version 1)
Quarter: 2017Q3

REPORT INFORMATION
  Report Type: Spontaneous
  Country: FR (occurrence: FR)
  Receive Date: 20170923
  Receipt Date: 20170923
  Transmission Date: 20171128
  Serious: Yes (Other)
  Sender: FDA-Public Use
  Company Number: FR-MERCK KGAA-2027479

PATIENT
  Sex: Male

DRUGS (1)
  1. NOVOTHYROX [Suspect]
     Active Substance: LEVOTHYROXINE SODIUM
     Indication: THYROID CALCIFICATION

REACTIONS (8)
  - Tachyarrhythmia [Recovering/Resolving]
  - Blood thyroid stimulating hormone decreased [Unknown]
  - Tremor [Unknown]
  - Angioedema [Not Recovered/Not Resolved]
  - Decreased appetite [Unknown]
  - Nausea [Unknown]
  - Suicidal ideation [Unknown]
  - Weight decreased [Unknown]

NARRATIVE: CASE EVENT DATE: 201703
